FAERS Safety Report 16715969 (Version 2)
Quarter: 2020Q3

REPORT INFORMATION
  Report Type: Spontaneous
  Country: IT (occurrence: IT)
  Receive Date: 20190819
  Receipt Date: 20200101
  Transmission Date: 20201104
  Serious: Yes (Other)
  Sender: FDA-Public Use
  Company Number: IT-ROCHE-2379827

PATIENT
  Age: 67 Year
  Sex: Female

DRUGS (2)
  1. IBANDRONIC ACID. [Suspect]
     Active Substance: IBANDRONIC ACID
     Indication: OSTEOPOROSIS
     Route: 065
     Dates: start: 20090616, end: 20150616
  2. ALENDRONIC ACID [Suspect]
     Active Substance: ALENDRONIC ACID
     Indication: OSTEOPOROSIS
     Dosage: 10 MG
     Route: 065
     Dates: start: 20040616, end: 20090615

REACTIONS (1)
  - Osteitis [Recovering/Resolving]

NARRATIVE: CASE EVENT DATE: 20150616
